FAERS Safety Report 16471290 (Version 2)
Quarter: 2019Q3

REPORT INFORMATION
  Report Type: Spontaneous
  Country: US (occurrence: US)
  Receive Date: 20190624
  Receipt Date: 20190708
  Transmission Date: 20191004
  Serious: No
  Sender: FDA-Public Use
  Company Number: US-SA-2019SA170381

PATIENT
  Age: 66 Year
  Sex: Male
  Weight: 120.6 kg

DRUGS (13)
  1. POTASSIUM CHLORIDE. [Concomitant]
     Active Substance: POTASSIUM CHLORIDE
  2. COMBIVENT RESPIMAT [Concomitant]
     Active Substance: ALBUTEROL SULFATE\IPRATROPIUM BROMIDE
  3. WARFARIN SODIUM. [Concomitant]
     Active Substance: WARFARIN SODIUM
  4. AMOXICILLIN CLAVULANIC ACID [Concomitant]
     Active Substance: AMOXICILLIN\CLAVULANIC ACID
  5. ALLOPURINOL. [Concomitant]
     Active Substance: ALLOPURINOL
  6. MOVIPREP [Concomitant]
     Active Substance: ASCORBIC ACID\POLYETHYLENE GLYCOL 3350\POTASSIUM CHLORIDE\SODIUM ASCORBATE\SODIUM CHLORIDE\SODIUM SULFATE
  7. PRALUENT [Suspect]
     Active Substance: ALIROCUMAB
     Indication: TYPE IIA HYPERLIPIDAEMIA
     Dosage: 75 MG, QOW
     Route: 058
     Dates: start: 20190301
  8. VITAMIN D3 [Concomitant]
     Active Substance: CHOLECALCIFEROL
  9. EZETIMIBE. [Concomitant]
     Active Substance: EZETIMIBE
  10. TOPROL XL [Concomitant]
     Active Substance: METOPROLOL SUCCINATE
  11. HYDROCODONE/ACETAMINOPHEN [Concomitant]
     Active Substance: ACETAMINOPHEN\HYDROCODONE
  12. FUROSEMIDE. [Concomitant]
     Active Substance: FUROSEMIDE
  13. ENOXAPARIN SODIUM. [Concomitant]
     Active Substance: ENOXAPARIN SODIUM

REACTIONS (5)
  - Condition aggravated [Unknown]
  - Headache [Unknown]
  - Muscle spasms [Unknown]
  - Gait disturbance [Unknown]
  - Back disorder [Unknown]

NARRATIVE: CASE EVENT DATE: 2019
